FAERS Safety Report 5885421-2 (Version None)
Quarter: 2008Q3

REPORT INFORMATION
  Report Type: 
  Country: None (occurrence: None)
  Receive Date: 20080915
  Receipt Date: 20080915
  Transmission Date: 20090109
  Serious: Yes (Other)
  Sender: FDA-Public Use
  Company Number: None

PATIENT
  Age: 33 Year
  Sex: Female
  Weight: 110.2241 kg

DRUGS (1)
  1. LAMOTRIGINE [Suspect]
     Indication: BIPOLAR DISORDER
     Dosage: 100MG 1X DAY PO
     Route: 048
     Dates: start: 20080819, end: 20080828

REACTIONS (6)
  - ABDOMINAL PAIN [None]
  - BIPOLAR I DISORDER [None]
  - CONDITION AGGRAVATED [None]
  - HEADACHE [None]
  - IRRITABILITY [None]
  - MENTAL DISORDER [None]
